FAERS Safety Report 6207945-0 (Version None)
Quarter: 2009Q2

REPORT INFORMATION
  Report Type: 
  Country: None (occurrence: None)
  Receive Date: 20090529
  Receipt Date: 20080806
  Transmission Date: 20091009
  Serious: No
  Sender: FDA-Public Use
  Company Number: A0741567A

PATIENT
  Age: 72 Year
  Sex: Male

DRUGS (6)
  1. VENTOLIN [Suspect]
     Indication: ASTHMA
     Route: 055
     Dates: start: 20050101
  2. ALBUTEROL [Concomitant]
     Route: 048
  3. THEOPHYLLINE [Concomitant]
  4. LIPITOR [Concomitant]
  5. CELEBREX [Concomitant]
  6. BUTALBITAL [Concomitant]

REACTIONS (2)
  - DRUG INEFFECTIVE [None]
  - EXPIRED DRUG ADMINISTERED [None]
